APPROVED DRUG PRODUCT: PROZAC
Active Ingredient: FLUOXETINE HYDROCHLORIDE
Strength: EQ 60MG BASE
Dosage Form/Route: CAPSULE;ORAL
Application: N018936 | Product #004
Applicant: ELI LILLY AND CO
Approved: Jun 15, 1999 | RLD: No | RS: No | Type: DISCN